FAERS Safety Report 13706095 (Version 1)
Quarter: 2017Q2

REPORT INFORMATION
  Report Type: Spontaneous
  Country: US (occurrence: US)
  Receive Date: 20170630
  Receipt Date: 20170630
  Transmission Date: 20170830
  Serious: No
  Sender: FDA-Public Use
  Company Number: US-BAYER-2017-126088

PATIENT
  Age: 83 Year
  Sex: Male
  Weight: 70 kg

DRUGS (3)
  1. SENNA [Concomitant]
     Active Substance: SENNA LEAF\SENNOSIDES\SENNOSIDES A AND B
  2. MIRALAX [Suspect]
     Active Substance: POLYETHYLENE GLYCOL 3350
     Indication: GASTROINTESTINAL DISORDER
     Dosage: 1 CAPFUL DOSE
     Route: 048
     Dates: start: 2017, end: 20170628
  3. BISACODYL. [Concomitant]
     Active Substance: BISACODYL

REACTIONS (2)
  - Poor quality drug administered [Unknown]
  - Product contamination [None]

NARRATIVE: CASE EVENT DATE: 20170628
